FAERS Safety Report 15561561 (Version 3)
Quarter: 2019Q1

REPORT INFORMATION
  Report Type: Spontaneous
  Country: EG (occurrence: EG)
  Receive Date: 20181029
  Receipt Date: 20190128
  Transmission Date: 20190417
  Serious: Yes (Hospitalization, Other)
  Sender: FDA-Public Use
  Company Number: EG-ROCHE-2202448

PATIENT
  Age: 58 Year
  Sex: Female

DRUGS (1)
  1. AVASTIN [Suspect]
     Active Substance: BEVACIZUMAB
     Indication: PRODUCT USED FOR UNKNOWN INDICATION
     Route: 050

REACTIONS (8)
  - Retinal tear [Unknown]
  - Eye haemorrhage [Unknown]
  - Intentional product use issue [Unknown]
  - Optic atrophy [Not Recovered/Not Resolved]
  - Blindness [Not Recovered/Not Resolved]
  - Off label use [Unknown]
  - Eye haemorrhage [Not Recovered/Not Resolved]
  - Pain [Not Recovered/Not Resolved]
